FAERS Safety Report 8010687-2 (Version None)
Quarter: 2011Q4

REPORT INFORMATION
  Report Type: 
  Country: None (occurrence: None)
  Receive Date: 20111228
  Receipt Date: 20111222
  Transmission Date: 20120403
  Serious: Yes (Death, Life-Threatening, Hospitalization, Other)
  Sender: FDA-Public Use
  Company Number: NL-COVIDIEN/TYCO HEALTHCARE/MALLINCKRODT-T201102887

PATIENT
  Sex: Male
  Weight: 90 kg

DRUGS (2)
  1. OPTIRAY 160 [Suspect]
     Indication: ANGIOGRAM
     Dosage: 130 ML, SINGLE
     Route: 042
     Dates: start: 20110601, end: 20110601
  2. METFORMIN HCL [Suspect]

REACTIONS (9)
  - HEPATIC FAILURE [None]
  - MULTI-ORGAN FAILURE [None]
  - VOLVULUS [None]
  - COLONIC HAEMATOMA [None]
  - SHOCK [None]
  - RENAL FAILURE [None]
  - NEPHROPATHY TOXIC [None]
  - CARDIOGENIC SHOCK [None]
  - THROMBOCYTOPENIA [None]
